FAERS Safety Report 5234115-5 (Version None)
Quarter: 2007Q1

REPORT INFORMATION
  Report Type: 
  Country: None (occurrence: None)
  Receive Date: 20070208
  Receipt Date: 20070130
  Transmission Date: 20070707
  Serious: Yes (Other)
  Sender: FDA-Public Use
  Company Number: BR-PFIZER INC-2007008572

PATIENT
  Sex: Male

DRUGS (1)
  1. FELDENE [Suspect]
     Indication: RENAL COLIC
     Route: 048
     Dates: start: 20050101, end: 20050101

REACTIONS (3)
  - LIMB INJURY [None]
  - OEDEMA PERIPHERAL [None]
  - ROAD TRAFFIC ACCIDENT [None]
